FAERS Safety Report 7767796-2 (Version None)
Quarter: 2011Q3

REPORT INFORMATION
  Report Type: 
  Country: None (occurrence: None)
  Receive Date: 20110922
  Receipt Date: 20110420
  Transmission Date: 20111222
  Serious: No
  Sender: FDA-Public Use
  Company Number: US-ASTRAZENECA-2011SE22633

PATIENT
  Sex: Male
  Weight: 111.1 kg

DRUGS (3)
  1. CORBITAL [Concomitant]
     Indication: WEIGHT INCREASED
  2. SEROQUEL [Suspect]
     Indication: BIPOLAR DISORDER
     Route: 048
     Dates: start: 20070101
  3. SEROQUEL [Suspect]
     Route: 048
     Dates: start: 20070101

REACTIONS (8)
  - MEMORY IMPAIRMENT [None]
  - VISUAL IMPAIRMENT [None]
  - DIZZINESS [None]
  - BLOOD CHOLESTEROL INCREASED [None]
  - BLOOD PRESSURE INCREASED [None]
  - INSOMNIA [None]
  - WEIGHT INCREASED [None]
  - COGNITIVE DISORDER [None]
